FAERS Safety Report 5630053-4 (Version None)
Quarter: 2008Q1

REPORT INFORMATION
  Report Type: 
  Country: None (occurrence: None)
  Receive Date: 20080218
  Receipt Date: 20080208
  Transmission Date: 20080703
  Serious: Yes (Hospitalization)
  Sender: FDA-Public Use
  Company Number: PHFR2007GB02968

PATIENT
  Age: 70 Year
  Sex: Female

DRUGS (6)
  1. CLOZARIL [Suspect]
     Indication: SCHIZOPHRENIA
     Dosage: 200 MG NOCTE
     Route: 048
     Dates: start: 19930106
  2. HALOPERIDOL [Concomitant]
     Indication: SCHIZOPHRENIA
     Dosage: 15 MG/DAY
     Route: 048
  3. LOFEPRAMINE [Concomitant]
     Indication: DEPRESSION
     Dosage: 210 MG/DAY
     Route: 048
  4. PROCYCLIDINE HYDROCHLORIDE 2MG TAB [Concomitant]
     Indication: SCHIZOPHRENIA
     Dosage: 5 MG/DAY
     Route: 048
  5. ADCAL-D3 [Concomitant]
     Indication: ARTHRITIS
     Route: 048
  6. SENNA [Concomitant]
     Indication: CONSTIPATION
     Dosage: 15 MG/DAY
     Route: 048

REACTIONS (5)
  - BLOOD CREATININE INCREASED [None]
  - BLOOD UREA INCREASED [None]
  - C-REACTIVE PROTEIN DECREASED [None]
  - SEPSIS [None]
  - URINARY TRACT INFECTION [None]
